FAERS Safety Report 23738438 (Version 1)
Quarter: 2024Q2

REPORT INFORMATION
  Report Type: Report from Study
  Country: IT (occurrence: IT)
  Receive Date: 20240412
  Receipt Date: 20240412
  Transmission Date: 20240716
  Serious: Yes (Other)
  Sender: FDA-Public Use
  Company Number: None

PATIENT
  Age: 73 Year
  Sex: Female

DRUGS (3)
  1. PACLITAXEL [Suspect]
     Active Substance: PACLITAXEL
     Indication: Breast cancer
     Dosage: START OF THERAPY 05/09/2023 - WEEKLY THERAPY - 9TH WEEK
     Route: 042
     Dates: start: 20231205, end: 20231205
  2. DARATUMUMAB [Concomitant]
     Active Substance: DARATUMUMAB
     Indication: Product used for unknown indication
     Route: 065
     Dates: start: 20231201
  3. PHESGO [Suspect]
     Active Substance: HYALURONIDASE-ZZXF\PERTUZUMAB\TRASTUZUMAB
     Indication: HER2 positive breast cancer
     Dosage: START OF THERAPY 24/10/2023 - THERAPY EVERY 21 DAYS - III CYCLE
     Route: 042
     Dates: start: 20231205, end: 20231205

REACTIONS (4)
  - Neutropenia [Recovering/Resolving]
  - Epistaxis [Recovered/Resolved]
  - Off label use [Recovering/Resolving]
  - Leukopenia [Recovering/Resolving]

NARRATIVE: CASE EVENT DATE: 20231201
